FAERS Safety Report 4296815-3 (Version None)
Quarter: 2004Q1

REPORT INFORMATION
  Report Type: 
  Country: None (occurrence: None)
  Receive Date: 20040217
  Receipt Date: 20040206
  Transmission Date: 20041129
  Serious: Yes (Other)
  Sender: FDA-Public Use
  Company Number: PHBS2004IT01973

PATIENT
  Sex: Female
  Weight: 2 kg

DRUGS (3)
  1. DICLOFENAC [Suspect]
     Route: 064
  2. NIMESULIDE [Suspect]
     Route: 064
  3. PARACETAMOL [Concomitant]

REACTIONS (12)
  - BLOOD CREATININE INCREASED [None]
  - BRADYCARDIA NEONATAL [None]
  - CYANOSIS NEONATAL [None]
  - GENERAL PHYSICAL HEALTH DETERIORATION [None]
  - MATERNAL DRUGS AFFECTING FOETUS [None]
  - NEONATAL RESPIRATORY DISTRESS SYNDROME [None]
  - PATENT DUCTUS ARTERIOSUS [None]
  - POLYURIA [None]
  - PREMATURE BABY [None]
  - RENAL FAILURE NEONATAL [None]
  - RESPIRATORY ACIDOSIS [None]
  - ULTRASOUND SCAN ABNORMAL [None]
